FAERS Safety Report 7888827-5 (Version None)
Quarter: 2011Q4

REPORT INFORMATION
  Report Type: 
  Country: None (occurrence: None)
  Receive Date: 20111102
  Receipt Date: 20111102
  Transmission Date: 20120403
  Serious: Yes (Other)
  Sender: FDA-Public Use
  Company Number: None

PATIENT
  Age: 69 Year
  Sex: Female
  Weight: 46.2669 kg

DRUGS (1)
  1. PRAMIPEXOLE DIHYDROCHLORIDE [Suspect]
     Indication: RESTLESS LEGS SYNDROME
     Dosage: 2 TBS TWICE DAILY ORAL
     Route: 048
     Dates: start: 20110204, end: 20110504

REACTIONS (2)
  - FATIGUE [None]
  - DRUG EFFECT DECREASED [None]
